FAERS Safety Report 5668143-2 (Version None)
Quarter: 2008Q1

REPORT INFORMATION
  Report Type: 
  Country: None (occurrence: None)
  Receive Date: 20080313
  Receipt Date: 20080305
  Transmission Date: 20080703
  Serious: Yes (Other)
  Sender: FDA-Public Use
  Company Number: 2008005563

PATIENT
  Age: 31 Year

DRUGS (1)
  1. ZYRTEC [Suspect]
     Indication: HYPERSENSITIVITY
     Dosage: 1 TABLET DAILY,ORAL
     Route: 048
     Dates: start: 19990101, end: 20051201

REACTIONS (1)
  - HYPOAESTHESIA [None]
